FAERS Safety Report 6909703-8 (Version None)
Quarter: 2010Q3

REPORT INFORMATION
  Report Type: 
  Country: None (occurrence: None)
  Receive Date: 20100805
  Receipt Date: 20100730
  Transmission Date: 20110219
  Serious: Yes (Other)
  Sender: FDA-Public Use
  Company Number: US-AMGEN-QUU408243

PATIENT
  Sex: Male
  Weight: 82.2 kg

DRUGS (3)
  1. NPLATE [Suspect]
     Indication: IDIOPATHIC THROMBOCYTOPENIC PURPURA
     Route: 058
     Dates: start: 20100317, end: 20100505
  2. CORTICOSTEROIDS [Concomitant]
     Dates: start: 20100131
  3. RITUXIMAB [Concomitant]
     Dates: start: 20100301

REACTIONS (1)
  - DRUG THERAPY CHANGED [None]
